FAERS Safety Report 19061354 (Version 1)
Quarter: 2021Q1

REPORT INFORMATION
  Report Type: Spontaneous
  Country: SA (occurrence: SA)
  Receive Date: 20210325
  Receipt Date: 20210325
  Transmission Date: 20210420
  Serious: Yes (Other)
  Sender: FDA-Public Use
  Company Number: SA-009507513-2103SAU004365

PATIENT
  Age: 26 Day
  Weight: 2.28 kg

DRUGS (3)
  1. AMIKACIN. [Concomitant]
     Active Substance: AMIKACIN
  2. RIFAMPIN. [Concomitant]
     Active Substance: RIFAMPIN
  3. DAPTOMYCIN. [Suspect]
     Active Substance: DAPTOMYCIN
     Indication: INFECTION
     Dosage: 6 MILLIGRAM/KILOGRAM, EVERY 12 HOURS AT A CONCENTRATION OF 5.6 MG/ML
     Route: 042

REACTIONS (3)
  - Inappropriate schedule of product administration [Unknown]
  - Off label use [Unknown]
  - Hepatotoxicity [Unknown]
